FAERS Safety Report 15887778 (Version 2)
Quarter: 2019Q1

REPORT INFORMATION
  Report Type: Report from Study
  Country: BR (occurrence: BR)
  Receive Date: 20190130
  Receipt Date: 20190330
  Transmission Date: 20190417
  Serious: Yes (Other)
  Sender: FDA-Public Use
  Company Number: BR-ROCHE-2155071

PATIENT
  Age: 56 Year
  Sex: Female
  Weight: 77 kg

DRUGS (1)
  1. MABTHERA [Suspect]
     Active Substance: RITUXIMAB
     Indication: RHEUMATOID ARTHRITIS
     Route: 042
     Dates: start: 20180710

REACTIONS (4)
  - Pharyngeal paraesthesia [Recovered/Resolved]
  - Throat irritation [Recovered/Resolved]
  - Paraesthesia ear [Recovered/Resolved]
  - Ear pruritus [Recovered/Resolved]

NARRATIVE: CASE EVENT DATE: 20180710
